FAERS Safety Report 23569913 (Version 1)
Quarter: 2024Q1

REPORT INFORMATION
  Report Type: Spontaneous
  Country: US (occurrence: None)
  Receive Date: 20240226
  Receipt Date: 20240226
  Transmission Date: 20240409
  Serious: Yes (unspecified)
  Sender: FDA-Public Use
  Company Number: None

PATIENT
  Age: 54 Year
  Sex: Female

DRUGS (1)
  1. .DELTA.9-TETRAHYDROCANNABINOL\HERBALS [Suspect]
     Active Substance: .DELTA.9-TETRAHYDROCANNABINOL\HERBALS

REACTIONS (4)
  - Anxiety [None]
  - Paranoia [None]
  - Overdose [None]
  - Substance use [None]

NARRATIVE: CASE EVENT DATE: 20240212
